FAERS Safety Report 7603516-X (Version None)
Quarter: 2011Q3

REPORT INFORMATION
  Report Type: 
  Country: None (occurrence: None)
  Receive Date: 20110711
  Receipt Date: 20110711
  Transmission Date: 20111222
  Serious: Yes (Other)
  Sender: FDA-Public Use
  Company Number: None

PATIENT
  Sex: Male

DRUGS (2)
  1. FENTANYL [Suspect]
     Indication: PAIN
     Dosage: 1 PATCH EVERY 3 DAYS TRANSDERMAL
     Route: 062
     Dates: start: 20110703, end: 20110704
  2. BLOOD PRESSURE MEDICATION [Concomitant]

REACTIONS (10)
  - EUPHORIC MOOD [None]
  - HALLUCINATION, VISUAL [None]
  - MENTAL DISORDER [None]
  - FEAR [None]
  - HANGOVER [None]
  - PRODUCT ADHESION ISSUE [None]
  - COMPLICATION OF DEVICE REMOVAL [None]
  - FEELING ABNORMAL [None]
  - PRODUCT SUBSTITUTION ISSUE [None]
  - NAUSEA [None]
